FAERS Safety Report 7124992-5 (Version None)
Quarter: 2010Q4

REPORT INFORMATION
  Report Type: 
  Country: None (occurrence: None)
  Receive Date: 20101123
  Receipt Date: 20101123
  Transmission Date: 20110411
  Serious: Yes (Other)
  Sender: FDA-Public Use
  Company Number: None

PATIENT

DRUGS (1)
  1. AMPYRA [Suspect]
     Dosage: ONE TABLET Q 12 HOURS BY MOUTH
     Route: 048
     Dates: start: 20100601, end: 20100801

REACTIONS (3)
  - ABASIA [None]
  - MULTIPLE SCLEROSIS RELAPSE [None]
  - NUCLEAR MAGNETIC RESONANCE IMAGING ABNORMAL [None]
